FAERS Safety Report 9617628 (Version 1)
Quarter: 2013Q4

REPORT INFORMATION
  Report Type: Spontaneous
  Country: US (occurrence: None)
  Receive Date: 20131009
  Receipt Date: 20131009
  Transmission Date: 20140711
  Serious: Yes (Death, Hospitalization)
  Sender: FDA-Public Use
  Company Number: 2013AP008632

PATIENT
  Age: 29 Year
  Sex: Female

DRUGS (2)
  1. PAROXETINE HCL TABLETS [Suspect]
     Route: 048
  2. FLECAINIDE ACETATE [Suspect]
     Route: 048

REACTIONS (5)
  - Toxicity to various agents [None]
  - Suicide attempt [None]
  - Ventricular tachycardia [None]
  - Haemorrhage intracranial [None]
  - Completed suicide [None]
